FAERS Safety Report 9214931 (Version 1)
Quarter: 2013Q2

REPORT INFORMATION
  Report Type: Report from Study
  Country: CA (occurrence: CA)
  Receive Date: 20130405
  Receipt Date: 20130405
  Transmission Date: 20140414
  Serious: Yes (Hospitalization)
  Sender: FDA-Public Use
  Company Number: CA-AMGEN-US254763

PATIENT
  Age: 73 Year
  Sex: Male

DRUGS (15)
  1. DENOSUMAB [Suspect]
     Indication: PROSTATE CANCER
     Dosage: UNK UNK, Q4WK
     Route: 058
     Dates: start: 20061127
  2. LORAZEPAM [Concomitant]
     Dosage: 1 MG, PRN
     Route: 048
     Dates: start: 2000
  3. TEMAZEPAM [Concomitant]
     Dosage: 30 MG, PRN
     Route: 048
     Dates: start: 2000
  4. ACETAMINOPHEN [Concomitant]
     Dosage: 500 MG, PRN
     Route: 048
     Dates: start: 2005
  5. QUININE [Concomitant]
     Dosage: 200 MG, QD
     Route: 048
     Dates: start: 1998
  6. CLOPIDOGREL BISULFATE [Concomitant]
     Dosage: 75 MG, QD
     Route: 048
     Dates: start: 2000
  7. ROSUVASTATIN CALCIUM [Concomitant]
     Dosage: 40 MG, QD
     Route: 048
     Dates: start: 2001, end: 20071129
  8. AMLODIPINE BESILATE [Concomitant]
     Dosage: 10 MG, QD
     Route: 048
     Dates: start: 2000, end: 20071129
  9. ACETYLSALICYLIC ACID [Concomitant]
     Dosage: 80 MG, QD
     Route: 048
     Dates: start: 2002
  10. BISOPROLOL [Concomitant]
     Dosage: 10 MG, QD
     Route: 048
     Dates: start: 2002, end: 20071129
  11. EZETIMIBE [Concomitant]
     Dosage: 10 MG, QD
     Route: 048
     Dates: start: 2004, end: 20071129
  12. LANSOPRAZOLE [Concomitant]
     Dosage: 30 MG, QD
     Route: 048
     Dates: start: 1998, end: 20071129
  13. CALCIUM [Concomitant]
     Dosage: 500 MG, QD
     Route: 048
     Dates: start: 20061128
  14. ERGOCALCIFEROL [Concomitant]
     Dosage: 400 IU, QD
     Route: 048
     Dates: start: 20061128
  15. GLYCERYL TRINITRATE [Concomitant]
     Dosage: UNK UNK, PRN
     Route: 060
     Dates: start: 1976

REACTIONS (1)
  - Anaemia [Recovered/Resolved]
